FAERS Safety Report 5929815-5 (Version None)
Quarter: 2008Q4

REPORT INFORMATION
  Report Type: 
  Country: None (occurrence: None)
  Receive Date: 20081024
  Receipt Date: 20081020
  Transmission Date: 20090506
  Serious: Yes (Death)
  Sender: FDA-Public Use
  Company Number: US-CELGENEUS-163-20785-08091205

PATIENT
  Sex: Male

DRUGS (2)
  1. THALOMID [Suspect]
     Indication: MULTIPLE MYELOMA
     Route: 048
     Dates: start: 20080819, end: 20080901
  2. THALOMID [Suspect]
     Route: 048
     Dates: start: 20080729, end: 20080801

REACTIONS (2)
  - CLOSTRIDIUM DIFFICILE COLITIS [None]
  - SEPTIC SHOCK [None]
